FAERS Safety Report 10755517 (Version 1)
Quarter: 2015Q1

REPORT INFORMATION
  Report Type: Spontaneous
  Country: US (occurrence: None)
  Receive Date: 20150123
  Receipt Date: 20150123
  Transmission Date: 20150721
  Serious: No
  Sender: FDA-Public Use
  Company Number: 2014TUS008491

PATIENT
  Age: 24 Year
  Sex: Male
  Weight: 67.1 kg

DRUGS (4)
  1. FOLIC ACID. [Concomitant]
     Active Substance: FOLIC ACID
  2. UCERIS (BUDESONIDE) [Concomitant]
  3. PRO-AIR (PROCATEROL HYDROCHLORIDE) [Concomitant]
  4. ENTYVIO [Suspect]
     Active Substance: VEDOLIZUMAB
     Indication: PRODUCT USED FOR UNKNOWN INDICATION
     Dosage: 300 MG, 1ST DOSE
     Route: 042
     Dates: start: 20140821, end: 20140821

REACTIONS (1)
  - Tachycardia [None]

NARRATIVE: CASE EVENT DATE: 20140905
